FAERS Safety Report 24977088 (Version 8)
Quarter: 2025Q2

REPORT INFORMATION
  Report Type: Spontaneous
  Country: CO (occurrence: CO)
  Receive Date: 20250217
  Receipt Date: 20250627
  Transmission Date: 20250717
  Serious: No
  Sender: PFIZER
  Company Number: CO-PFIZER INC-202500030996

PATIENT
  Age: 12 Year
  Sex: Male

DRUGS (2)
  1. GENOTROPIN [Suspect]
     Active Substance: SOMATROPIN
     Indication: Growth hormone deficiency
     Dosage: 1 MG, DAILY
     Route: 058
     Dates: start: 202501, end: 202501
  2. LORATADINE [Concomitant]
     Active Substance: LORATADINE
     Indication: Rhinitis

REACTIONS (6)
  - Wrong technique in device usage process [Recovered/Resolved]
  - Drug dose omission by device [Unknown]
  - Device delivery system issue [Unknown]
  - Device mechanical issue [Unknown]
  - Device leakage [Unknown]
  - Device information output issue [Unknown]

NARRATIVE: CASE EVENT DATE: 20250101
